FAERS Safety Report 19829500 (Version 1)
Quarter: 2021Q3

REPORT INFORMATION
  Report Type: Spontaneous
  Country: CN (occurrence: CN)
  Receive Date: 20210914
  Receipt Date: 20210914
  Transmission Date: 20211014
  Serious: Yes (Other)
  Sender: FDA-Public Use
  Company Number: CN-PFIZER INC-202101146554

PATIENT
  Age: 41 Year
  Sex: Female
  Weight: 77 kg

DRUGS (1)
  1. HEMABATE [Suspect]
     Active Substance: CARBOPROST TROMETHAMINE
     Indication: UTERINE HYPOTONUS
     Dosage: 250.000 UG, 1X/DAY
     Route: 061
     Dates: start: 20210816, end: 20210816

REACTIONS (7)
  - Abdominal pain upper [Unknown]
  - Nausea [Recovered/Resolved]
  - Product use issue [Unknown]
  - Diarrhoea [Recovered/Resolved]
  - Off label use [Unknown]
  - Vomiting [Recovered/Resolved]
  - Discomfort [Recovering/Resolving]

NARRATIVE: CASE EVENT DATE: 20210817
